FAERS Safety Report 6672488-7 (Version None)
Quarter: 2010Q2

REPORT INFORMATION
  Report Type: 
  Country: None (occurrence: None)
  Receive Date: 20100406
  Receipt Date: 20100319
  Transmission Date: 20101027
  Serious: Yes (Life-Threatening, Hospitalization)
  Sender: FDA-Public Use
  Company Number: 009116

PATIENT
  Age: 80 Year
  Sex: Male

DRUGS (13)
  1. AMIODARONE HCL [Suspect]
     Indication: SUPRAVENTRICULAR TACHYCARDIA
     Dosage: ORAL
     Route: 048
     Dates: start: 20100121, end: 20100223
  2. OMEPRAZOLE [Suspect]
     Indication: BARRETT'S OESOPHAGUS
     Dosage: 40 MG QD ORAL
     Route: 048
     Dates: start: 20100120, end: 20100223
  3. OMEPRAZOLE [Suspect]
     Indication: GASTRIC ULCER
     Dosage: 40 MG QD ORAL
     Route: 048
     Dates: start: 20100120, end: 20100223
  4. OMEPRAZOLE [Suspect]
     Indication: UPPER GASTROINTESTINAL HAEMORRHAGE
     Dosage: 40 MG QD ORAL
     Route: 048
     Dates: start: 20100120, end: 20100223
  5. GAVISCON [Concomitant]
  6. GLICLAZIDE [Concomitant]
  7. GYLCERYL TRINITRATE [Concomitant]
  8. HYDROCHORTISONE [Concomitant]
  9. LISINOPRIL [Concomitant]
  10. METFORMIN HCL [Concomitant]
  11. PARACETAMOL [Concomitant]
  12. PRAVASTATIN SODIUM [Concomitant]
  13. SITAGLIPTIN [Concomitant]

REACTIONS (4)
  - EPISTAXIS [None]
  - HAEMOGLOBIN DECREASED [None]
  - HYPERTENSION [None]
  - IDIOPATHIC THROMBOCYTOPENIC PURPURA [None]
